FAERS Safety Report 9414939 (Version 3)
Quarter: 2013Q3

REPORT INFORMATION
  Report Type: Spontaneous
  Country: US (occurrence: None)
  Receive Date: 20130718
  Receipt Date: 20130828
  Transmission Date: 20140515
  Serious: Yes (Hospitalization, Other)
  Sender: FDA-Public Use
  Company Number: JPI-P-033507

PATIENT
  Age: 56 Year
  Sex: Male
  Weight: 113.4 kg

DRUGS (4)
  1. XYREM [Suspect]
     Indication: CATAPLEXY
     Route: 048
     Dates: start: 20021031
  2. METHYLPHENIDATE HYDROCHLORIDE [Concomitant]
  3. MORPHINE SULFATE [Concomitant]
  4. PRAVASTATIN SODIUM [Concomitant]

REACTIONS (6)
  - Cerebrovascular accident [None]
  - Blood cholesterol increased [None]
  - Loss of consciousness [None]
  - Blood pressure decreased [None]
  - Nerve injury [None]
  - Back pain [None]
